FAERS Safety Report 15631283 (Version 1)
Quarter: 2018Q4

REPORT INFORMATION
  Report Type: Spontaneous
  Country: ES (occurrence: ES)
  Receive Date: 20181119
  Receipt Date: 20181119
  Transmission Date: 20190205
  Serious: Yes (Other)
  Sender: FDA-Public Use
  Company Number: ES-AUROBINDO-AUR-APL-2018-055653

PATIENT
  Age: 61 Year
  Sex: Male

DRUGS (18)
  1. CYCLOPHOSPHAMIDE. [Suspect]
     Active Substance: CYCLOPHOSPHAMIDE
     Indication: METASTASES TO BONE
  2. VINCRISTINE SULFATE. [Suspect]
     Active Substance: VINCRISTINE SULFATE
     Indication: PARAGANGLION NEOPLASM MALIGNANT
  3. ZOLEDRONIC ACID [Suspect]
     Active Substance: ZOLEDRONIC ACID
     Indication: METASTASES TO BONE
     Dosage: 4 MILLIGRAM (4 MG, FOR 28 DAYS)
     Route: 065
     Dates: start: 201502, end: 201702
  4. ZOLEDRONIC ACID [Suspect]
     Active Substance: ZOLEDRONIC ACID
     Indication: METASTASES TO SOFT TISSUE
  5. SOMATULINE AUTOGEL [Suspect]
     Active Substance: LANREOTIDE ACETATE
     Indication: PARAGANGLION NEOPLASM MALIGNANT
  6. VINCRISTINE SULFATE. [Suspect]
     Active Substance: VINCRISTINE SULFATE
     Indication: METASTASES TO SOFT TISSUE
  7. TEMOZOLOMIDE. [Suspect]
     Active Substance: TEMOZOLOMIDE
     Indication: METASTASES TO SOFT TISSUE
  8. SOMATULINE AUTOGEL [Suspect]
     Active Substance: LANREOTIDE ACETATE
     Indication: METASTASES TO BONE
     Dosage: 120 MILLIGRAM EVERY TWO WEEKS (120 MG, QOW)
     Route: 065
     Dates: start: 201703
  9. ZOLEDRONIC ACID [Suspect]
     Active Substance: ZOLEDRONIC ACID
     Indication: PARAGANGLION NEOPLASM MALIGNANT
     Dosage: 4 MILLIGRAM (4 MG, FOR 28 DAYS)
     Route: 065
     Dates: start: 201703
  10. SOMATULINE AUTOGEL [Suspect]
     Active Substance: LANREOTIDE ACETATE
     Indication: METASTASES TO SOFT TISSUE
     Dosage: 120 MILLIGRAM EVERY TWO WEEKS (120 MG, QOW)
     Route: 065
     Dates: start: 201502, end: 201702
  11. TEMOZOLOMIDE. [Suspect]
     Active Substance: TEMOZOLOMIDE
     Indication: METASTASES TO BONE
     Dosage: 75 MILLIGRAM/SQ. METER, DAILY
     Route: 065
     Dates: start: 201512, end: 201702
  12. DACARBAZINE. [Suspect]
     Active Substance: DACARBAZINE
     Indication: PARAGANGLION NEOPLASM MALIGNANT
  13. TEMOZOLOMIDE. [Suspect]
     Active Substance: TEMOZOLOMIDE
     Indication: PARAGANGLION NEOPLASM MALIGNANT
     Dosage: 75 MILLIGRAM/SQ. METER, DAILY
     Route: 065
     Dates: start: 201703
  14. DACARBAZINE. [Suspect]
     Active Substance: DACARBAZINE
     Indication: METASTASES TO BONE
  15. CYCLOPHOSPHAMIDE. [Suspect]
     Active Substance: CYCLOPHOSPHAMIDE
     Indication: PARAGANGLION NEOPLASM MALIGNANT
     Dosage: 750 MILLIGRAM/SQ. METER EVERY 3 WEEKS (750 MG/M2, ON DAY 1, EVERY 21 DAYS)
     Route: 065
     Dates: start: 201502, end: 2015
  16. DACARBAZINE. [Suspect]
     Active Substance: DACARBAZINE
     Indication: METASTASES TO SOFT TISSUE
     Dosage: 600 MG/M2, ON DAY AND 2 EVERY 21 DAYS
     Route: 065
     Dates: start: 201502, end: 2015
  17. CYCLOPHOSPHAMIDE. [Suspect]
     Active Substance: CYCLOPHOSPHAMIDE
     Indication: METASTASES TO SOFT TISSUE
  18. VINCRISTINE SULFATE. [Suspect]
     Active Substance: VINCRISTINE SULFATE
     Indication: METASTASES TO BONE
     Dosage: 1.4 MILLIGRAM/SQ. METER EVERY 3 WEEKS (1.4 MG/M2, Q3W, ON DAY 1)
     Route: 065
     Dates: start: 201502, end: 2015

REACTIONS (5)
  - Condition aggravated [Recovering/Resolving]
  - Metabolic disorder [Unknown]
  - Lymphopenia [Unknown]
  - Paraganglion neoplasm malignant [Unknown]
  - Drug ineffective [Unknown]

NARRATIVE: CASE EVENT DATE: 2015
